FAERS Safety Report 17586048 (Version 1)
Quarter: 2020Q1

REPORT INFORMATION
  Report Type: Spontaneous
  Country: US (occurrence: US)
  Receive Date: 20200326
  Receipt Date: 20200326
  Transmission Date: 20200409
  Serious: Yes (Life-Threatening, Hospitalization, Other)
  Sender: FDA-Public Use
  Company Number: US-ACCORD-176866

PATIENT
  Age: 62 Year
  Sex: Female

DRUGS (7)
  1. TERAZOSIN [Suspect]
     Active Substance: TERAZOSIN HYDROCHLORIDE
     Indication: HYPERTENSION
  2. METOLAZONE. [Suspect]
     Active Substance: METOLAZONE
     Indication: HYPERTENSION
  3. ISOSORBIDE. [Suspect]
     Active Substance: ISOSORBIDE
     Indication: HYPERTENSION
  4. BUMETANIDE. [Suspect]
     Active Substance: BUMETANIDE
     Indication: HYPERTENSION
  5. AMLODIPINE [Suspect]
     Active Substance: AMLODIPINE BESYLATE
     Indication: HYPERTENSION
  6. HYDRALAZINE [Suspect]
     Active Substance: HYDRALAZINE HYDROCHLORIDE
     Indication: HYPERTENSION
  7. CARVEDILOL/CARVEDILOL HYDROCHLODRIDE [Suspect]
     Active Substance: CARVEDILOL HYDROCHLORIDE
     Indication: HYPERTENSION

REACTIONS (5)
  - Acute kidney injury [Recovering/Resolving]
  - Bradycardia [Recovering/Resolving]
  - Lactic acidosis [Recovering/Resolving]
  - Hyperkalaemia [Recovering/Resolving]
  - Shock [Recovering/Resolving]
